FAERS Safety Report 4904809-7 (Version None)
Quarter: 2006Q1

REPORT INFORMATION
  Report Type: 
  Country: None (occurrence: None)
  Receive Date: 20060208
  Receipt Date: 20051006
  Transmission Date: 20060701
  Serious: No
  Sender: FDA-Public Use
  Company Number: US-GLAXOSMITHKLINE-A0577349A

PATIENT
  Age: 59 Year
  Sex: Female

DRUGS (5)
  1. PAXIL [Suspect]
     Indication: DEPRESSION
     Dosage: 10MG PER DAY
     Route: 048
  2. ESTROGEN PATCH [Concomitant]
  3. SYNTHROID [Concomitant]
  4. POTASSIUM SUPPLEMENT [Concomitant]
  5. XANAX [Concomitant]
     Route: 065

REACTIONS (2)
  - HYPERACUSIS [None]
  - PHOTOSENSITIVITY REACTION [None]
